FAERS Safety Report 9932515 (Version 1)
Quarter: 2014Q1

REPORT INFORMATION
  Report Type: Spontaneous
  Country: US (occurrence: US)
  Receive Date: 20140228
  Receipt Date: 20140228
  Transmission Date: 20141002
  Serious: No
  Sender: FDA-Public Use
  Company Number: US-ABBVIE-13P-163-1177680-00

PATIENT
  Age: 54 Year
  Sex: Male
  Weight: 113.5 kg

DRUGS (4)
  1. ANDROGEL [Suspect]
     Indication: BLOOD TESTOSTERONE DECREASED
     Dates: start: 2011, end: 201311
  2. ANDROGEL [Suspect]
     Dates: start: 201311
  3. MORPHINE [Concomitant]
     Indication: PAIN
  4. MORPHINE [Concomitant]
     Indication: DIABETIC NEUROPATHY

REACTIONS (2)
  - Weight increased [Not Recovered/Not Resolved]
  - Local swelling [Not Recovered/Not Resolved]
